FAERS Safety Report 17793580 (Version 2)
Quarter: 2020Q3

REPORT INFORMATION
  Report Type: Spontaneous
  Country: GB (occurrence: GB)
  Receive Date: 20200515
  Receipt Date: 20200928
  Transmission Date: 20201102
  Serious: Yes (Other)
  Sender: FDA-Public Use
  Company Number: NVSC2020GB132345

PATIENT
  Age: 87 Year
  Sex: Male

DRUGS (2)
  1. TICAGRELOR. [Suspect]
     Active Substance: TICAGRELOR
     Indication: ACUTE CORONARY SYNDROME
     Dosage: 5 DF
     Route: 065
     Dates: start: 20181009
  2. CLARITHROMYCIN. [Suspect]
     Active Substance: CLARITHROMYCIN
     Indication: PNEUMONIA
     Dosage: 5 DF
     Route: 065
     Dates: start: 20181009, end: 20181012

REACTIONS (2)
  - Haematuria [Unknown]
  - Drug interaction [Unknown]
